FAERS Safety Report 5078644-6 (Version None)
Quarter: 2006Q3

REPORT INFORMATION
  Report Type: 
  Country: None (occurrence: None)
  Receive Date: 20060810
  Receipt Date: 20060810
  Transmission Date: 20061208
  Serious: Yes (Hospitalization)
  Sender: FDA-Public Use
  Company Number: None

PATIENT
  Sex: Female
  Weight: 53.4 kg

DRUGS (4)
  1. DAUNORUBICIN HCL [Suspect]
     Dosage: 270 MG
     Dates: end: 20060721
  2. DEXAMETHASONE [Suspect]
     Dosage: 140 MG
     Dates: end: 20060726
  3. ELSPAR [Suspect]
     Dosage: 36000 UNIT
     Dates: end: 20060802
  4. VINCRISTINE SULFATE [Suspect]
     Dosage: 5 MG
     Dates: end: 20060802

REACTIONS (10)
  - ABDOMINAL PAIN [None]
  - ATROPHIC VULVOVAGINITIS [None]
  - CONSTIPATION [None]
  - DIVERTICULUM [None]
  - DRUG EFFECT DECREASED [None]
  - FAECAL VOLUME INCREASED [None]
  - HAEMORRHOIDS [None]
  - NEUTROPENIA [None]
  - RECTAL HAEMORRHAGE [None]
  - VAGINAL HAEMORRHAGE [None]
